FAERS Safety Report 9411145 (Version 1)
Quarter: 2013Q3

REPORT INFORMATION
  Report Type: Report from Study
  Country: BR (occurrence: BR)
  Receive Date: 20130721
  Receipt Date: 20130721
  Transmission Date: 20140515
  Serious: Yes (Other)
  Sender: FDA-Public Use
  Company Number: PHHY2013BR063497

PATIENT
  Sex: Male

DRUGS (2)
  1. DIOVAN [Suspect]
     Indication: ANTICOAGULANT THERAPY
     Dosage: 160 MG, UNK
     Dates: start: 2013
  2. ASPIRIN [Suspect]
     Dosage: UNK UKN, UNK

REACTIONS (1)
  - Arterial occlusive disease [Unknown]
